FAERS Safety Report 9838224 (Version 1)
Quarter: 2013Q4

REPORT INFORMATION
  Report Type: Spontaneous
  Country: US (occurrence: None)
  Receive Date: 20131205
  Receipt Date: 20131205
  Transmission Date: 20140711
  Serious: Yes (Other)
  Sender: FDA-Public Use
  Company Number: 163-POMAL-13082045

PATIENT
  Age: 75 Year
  Sex: Male

DRUGS (2)
  1. POMALYST (POMALIDOMIDE) (CAPSULES) [Suspect]
     Indication: PLASMA CELL MYELOMA
     Dosage: 21 IN 21 D
     Route: 048
     Dates: start: 20130804
  2. CRESTOR (ROSUVASTATIN) [Suspect]

REACTIONS (5)
  - Myalgia [None]
  - Arthralgia [None]
  - Pain in extremity [None]
  - Fatigue [None]
  - Gait disturbance [None]
